FAERS Safety Report 7484960-0 (Version None)
Quarter: 2011Q2

REPORT INFORMATION
  Report Type: 
  Country: None (occurrence: None)
  Receive Date: 20110517
  Receipt Date: 20101004
  Transmission Date: 20111010
  Serious: No
  Sender: FDA-Public Use
  Company Number: US-BAYER-201022269BCC

PATIENT
  Age: 44 Year
  Sex: Female
  Weight: 109.9 kg

DRUGS (1)
  1. NAPROXEN (ALEVE) [Suspect]
     Indication: ARTHRITIS
     Dosage: UNK
     Route: 048
     Dates: start: 20101004

REACTIONS (1)
  - NAUSEA [None]
